FAERS Safety Report 7273819-X (Version None)
Quarter: 2011Q1

REPORT INFORMATION
  Report Type: 
  Country: None (occurrence: None)
  Receive Date: 20110203
  Receipt Date: 20110128
  Transmission Date: 20110831
  Serious: Yes (Other)
  Sender: FDA-Public Use
  Company Number: US-BAXTER-2011BH002411

PATIENT
  Sex: Female

DRUGS (3)
  1. FLUMAZENIL [Suspect]
     Indication: OVERDOSE
     Route: 065
  2. NALOXONE SYRINGE [Suspect]
     Indication: OVERDOSE
     Route: 065
  3. LORAZEPAM [Concomitant]
     Indication: INTENTIONAL OVERDOSE
     Route: 065

REACTIONS (1)
  - CONVULSION [None]
